FAERS Safety Report 20212399 (Version 3)
Quarter: 2022Q1

REPORT INFORMATION
  Report Type: Spontaneous
  Country: IN (occurrence: IN)
  Receive Date: 20211221
  Receipt Date: 20220106
  Transmission Date: 20220423
  Serious: Yes (Hospitalization, Other)
  Sender: FDA-Public Use
  Company Number: IN-MLMSERVICE-20211210-3266117-1

PATIENT
  Age: 48 Year
  Sex: Male

DRUGS (1)
  1. PANTOPRAZOLE [Suspect]
     Active Substance: PANTOPRAZOLE
     Indication: Abdominal discomfort
     Dosage: UNK (UNSUPERVISED USE OF PANTOPRAZOLE FOR 4 TO 5 MONTHS)

REACTIONS (8)
  - Liver function test abnormal [Unknown]
  - Coagulation test abnormal [Unknown]
  - Leukocytosis [Unknown]
  - Systemic candida [Recovered/Resolved]
  - Gastric perforation [Recovered/Resolved]
  - Renal function test abnormal [Unknown]
  - Neutrophilia [Unknown]
  - Abdominal tenderness [Unknown]
